FAERS Safety Report 8047709-9 (Version None)
Quarter: 2012Q1

REPORT INFORMATION
  Report Type: 
  Country: None (occurrence: None)
  Receive Date: 20120116
  Receipt Date: 20120112
  Transmission Date: 20120608
  Serious: Yes (Other)
  Sender: FDA-Public Use
  Company Number: DE-JNJFOC-20120104517

PATIENT
  Age: 32 Year
  Sex: Female

DRUGS (2)
  1. MINOXIDIL [Suspect]
     Indication: PRODUCT USED FOR UNKNOWN INDICATION
     Route: 061
  2. MINOXIDIL [Suspect]
     Route: 061

REACTIONS (4)
  - DYSPNOEA [None]
  - TACHYCARDIA [None]
  - CHEST DISCOMFORT [None]
  - VERTIGO [None]
